FAERS Safety Report 6158031-X (Version None)
Quarter: 2009Q2

REPORT INFORMATION
  Report Type: 
  Country: None (occurrence: None)
  Receive Date: 20090417
  Receipt Date: 20090416
  Transmission Date: 20091009
  Serious: Yes (Hospitalization)
  Sender: FDA-Public Use
  Company Number: DE-PFIZER INC-ENC200800203

PATIENT

DRUGS (13)
  1. ARGATROBAN [Suspect]
     Indication: HEPARIN-INDUCED THROMBOCYTOPENIA
     Dosage: 8 ML/HR
     Route: 042
     Dates: start: 20081002
  2. ARGATROBAN [Suspect]
     Dosage: 1 ML/HR AT 0:00
     Route: 042
     Dates: start: 20081010
  3. ARGATROBAN [Suspect]
     Route: 042
  4. ALLOPURINOL [Concomitant]
  5. FENISTIL-RETARD [Concomitant]
  6. FURORESE [Concomitant]
  7. BROMOCRIPTINE [Concomitant]
  8. KALINOR [Concomitant]
     Dates: start: 20081002
  9. PANTOZOL [Concomitant]
     Dates: start: 20081002
  10. COMBACTAM [Concomitant]
     Dates: start: 20081008
  11. LISINOPRIL [Concomitant]
     Dates: start: 20081008
  12. MARCUMAR [Concomitant]
     Indication: PULMONARY EMBOLISM
     Dates: start: 19960101
  13. MARCUMAR [Concomitant]
     Dates: start: 20081001

REACTIONS (2)
  - COAGULATION TIME PROLONGED [None]
  - DRUG ADMINISTRATION ERROR [None]
